FAERS Safety Report 4923794-5 (Version None)
Quarter: 2006Q1

REPORT INFORMATION
  Report Type: 
  Country: None (occurrence: None)
  Receive Date: 20060224
  Receipt Date: 20060224
  Transmission Date: 20060701
  Serious: Yes (Other)
  Sender: FDA-Public Use
  Company Number: None

PATIENT
  Sex: Female
  Weight: 89.3586 kg

DRUGS (2)
  1. OXYCONTIN [Suspect]
     Indication: BURSITIS
     Dosage: 40 MG (2 AM) ONE HS
  2. OXYCONTIN [Suspect]
     Indication: INTERVERTEBRAL DISC PROTRUSION
     Dosage: 40 MG (2 AM) ONE HS

REACTIONS (2)
  - DRUG INEFFECTIVE [None]
  - NAUSEA [None]
